FAERS Safety Report 5443068-6 (Version None)
Quarter: 2007Q3

REPORT INFORMATION
  Report Type: 
  Country: None (occurrence: None)
  Receive Date: 20070905
  Receipt Date: 20070831
  Transmission Date: 20080115
  Serious: Yes (Other)
  Sender: FDA-Public Use
  Company Number: PHRM2007FR01597

PATIENT
  Age: 55 Year
  Sex: Male

DRUGS (4)
  1. TEGRETOL [Suspect]
     Indication: BIPOLAR DISORDER
     Dosage: 700 MG/DAY
     Route: 048
     Dates: start: 20060401
  2. ALPRAZOLAM [Concomitant]
     Route: 048
     Dates: start: 20060801
  3. ZOLOFT [Concomitant]
     Route: 048
     Dates: start: 20060801
  4. ZOPICLONE [Concomitant]
     Route: 048
     Dates: start: 20060801

REACTIONS (2)
  - BONE DENSITY DECREASED [None]
  - OSTEOPOROSIS [None]
